FAERS Safety Report 17468824 (Version 1)
Quarter: 2020Q1

REPORT INFORMATION
  Report Type: Spontaneous
  Country: US (occurrence: US)
  Receive Date: 20200217
  Receipt Date: 20200217
  Transmission Date: 20200409
  Serious: Yes (Hospitalization)
  Sender: FDA-Public Use
  Company Number: None

PATIENT
  Age: 78 Year
  Sex: Female

DRUGS (1)
  1. EVEROLIMUS 5 MG [Suspect]
     Active Substance: EVEROLIMUS
     Indication: DIFFUSE LARGE B-CELL LYMPHOMA
     Route: 048
     Dates: start: 20200127

REACTIONS (1)
  - Transfusion [None]

NARRATIVE: CASE EVENT DATE: 20200217
